FAERS Safety Report 20478654 (Version 1)
Quarter: 2022Q1

REPORT INFORMATION
  Report Type: Spontaneous
  Country: PT (occurrence: PT)
  Receive Date: 20220216
  Receipt Date: 20220216
  Transmission Date: 20220423
  Serious: Yes (Hospitalization)
  Sender: FDA-Public Use
  Company Number: None

PATIENT
  Age: 72 Year
  Sex: Male

DRUGS (1)
  1. MABTHERA [Suspect]
     Active Substance: RITUXIMAB
     Indication: Lymphoma
     Dosage: LOTES N7458B21 E H0311B30??CONCENTRATE FOR SOLUTION FOR INFUSION
     Route: 041
     Dates: start: 20211029, end: 20211029

REACTIONS (3)
  - Tremor [Unknown]
  - Dyspnoea [Unknown]
  - Feeling cold [Unknown]

NARRATIVE: CASE EVENT DATE: 20211029
